FAERS Safety Report 7719516-5 (Version None)
Quarter: 2011Q3

REPORT INFORMATION
  Report Type: 
  Country: None (occurrence: None)
  Receive Date: 20110830
  Receipt Date: 20110825
  Transmission Date: 20111222
  Serious: Yes (Other)
  Sender: FDA-Public Use
  Company Number: PHHY2011GB69960

PATIENT
  Age: 27 Year
  Sex: Male

DRUGS (6)
  1. TIMOLOL MALEATE [Suspect]
     Indication: INTRAOCULAR PRESSURE INCREASED
  2. DORZOLAMIDE [Suspect]
     Indication: INTRAOCULAR PRESSURE INCREASED
  3. PILOCARPINE [Suspect]
     Indication: INTRAOCULAR PRESSURE INCREASED
  4. ATROPINE [Suspect]
     Indication: ANTERIOR CHAMBER DISORDER
  5. ACETALOZAMIDE [Suspect]
     Indication: ANTERIOR CHAMBER DISORDER
  6. LATANOPROST [Suspect]
     Indication: INTRAOCULAR PRESSURE INCREASED

REACTIONS (4)
  - DRUG INEFFECTIVE [None]
  - VISUAL ACUITY TESTS ABNORMAL [None]
  - INTRAOCULAR PRESSURE INCREASED [None]
  - ANTERIOR CHAMBER DISORDER [None]
